FAERS Safety Report 10784635 (Version 1)
Quarter: 2015Q1

REPORT INFORMATION
  Report Type: Spontaneous
  Country: US (occurrence: None)
  Receive Date: 20150209
  Receipt Date: 20150209
  Transmission Date: 20150721
  Serious: No
  Sender: FDA-Public Use
  Company Number: None

PATIENT
  Age: 38 Year
  Sex: Male
  Weight: 89.36 kg

DRUGS (2)
  1. LEVAQUIN [Suspect]
     Active Substance: LEVOFLOXACIN
     Indication: PNEUMONIA
     Route: 048
     Dates: start: 20150115, end: 20150120
  2. PREDNISONE 20MG [Concomitant]
     Active Substance: PREDNISONE

REACTIONS (2)
  - Pain in extremity [None]
  - Tendonitis [None]

NARRATIVE: CASE EVENT DATE: 20150119
